FAERS Safety Report 7030343-7 (Version None)
Quarter: 2010Q4

REPORT INFORMATION
  Report Type: 
  Country: None (occurrence: None)
  Receive Date: 20101006
  Receipt Date: 20100929
  Transmission Date: 20110411
  Serious: Yes (Other)
  Sender: FDA-Public Use
  Company Number: BR-US-EMD SERONO, INC.-7019486

PATIENT
  Sex: Female

DRUGS (4)
  1. REBIF [Suspect]
     Indication: RELAPSING-REMITTING MULTIPLE SCLEROSIS
     Route: 058
  2. AMITRIPTYLINE [Concomitant]
  3. FARMATHON [Concomitant]
  4. PARACETAMOL [Concomitant]

REACTIONS (3)
  - DIZZINESS [None]
  - INJECTION SITE ERYTHEMA [None]
  - PERICARDIAL EFFUSION [None]
